FAERS Safety Report 11124182 (Version 1)
Quarter: 2015Q2

REPORT INFORMATION
  Report Type: Spontaneous
  Country: US (occurrence: US)
  Receive Date: 20150520
  Receipt Date: 20150520
  Transmission Date: 20150821
  Serious: Yes (Hospitalization)
  Sender: FDA-Public Use
  Company Number: US-ROCHE-1580150

PATIENT
  Sex: Male

DRUGS (3)
  1. XELODA [Suspect]
     Active Substance: CAPECITABINE
     Indication: GASTRIC CANCER
     Dosage: FOR ONE WEEK
     Route: 065
  2. OMEPRAZOLE. [Concomitant]
     Active Substance: OMEPRAZOLE
  3. XELODA [Suspect]
     Active Substance: CAPECITABINE
     Route: 065
     Dates: end: 20150420

REACTIONS (3)
  - Mental status changes [Not Recovered/Not Resolved]
  - Encephalopathy [Not Recovered/Not Resolved]
  - Neurotoxicity [Not Recovered/Not Resolved]
